FAERS Safety Report 19777313 (Version 2)
Quarter: 2022Q1

REPORT INFORMATION
  Report Type: Spontaneous
  Country: US (occurrence: US)
  Receive Date: 20210901
  Receipt Date: 20220203
  Transmission Date: 20220423
  Serious: No
  Sender: FDA-Public Use
  Company Number: US-AMGEN INC.-USASP2021132908

PATIENT
  Age: 33 Year
  Sex: Female

DRUGS (1)
  1. AIMOVIG [Suspect]
     Active Substance: ERENUMAB-AOOE
     Indication: Migraine with aura
     Dosage: 70 MILLIGRAM, QMO
     Route: 058
     Dates: start: 20210815

REACTIONS (2)
  - Device difficult to use [Unknown]
  - Accidental exposure to product [Unknown]
